FAERS Safety Report 8240899-4 (Version None)
Quarter: 2012Q1

REPORT INFORMATION
  Report Type: 
  Country: None (occurrence: None)
  Receive Date: 20120328
  Receipt Date: 20120316
  Transmission Date: 20120608
  Serious: Yes (Other)
  Sender: FDA-Public Use
  Company Number: FR-VALEANT-2012VX001301

PATIENT

DRUGS (4)
  1. FLUOROURACIL [Suspect]
     Route: 040
  2. LEUCOVORIN CALCIUM [Suspect]
     Route: 042
  3. OXALIPLATIN [Suspect]
     Route: 042
  4. FLUOROURACIL [Suspect]
     Route: 040

REACTIONS (1)
  - NEUTROPENIC SEPSIS [None]
